FAERS Safety Report 20146747 (Version 1)
Quarter: 2021Q4

REPORT INFORMATION
  Report Type: Report from Study
  Country: GE (occurrence: GE)
  Receive Date: 20211203
  Receipt Date: 20211203
  Transmission Date: 20220304
  Serious: Yes (Other)
  Sender: FDA-Public Use
  Company Number: GE-LUNDBECK-DKLU3041535

PATIENT
  Age: 32 Year
  Sex: Female
  Weight: 49.5 kg

DRUGS (3)
  1. EPTINEZUMAB [Suspect]
     Active Substance: EPTINEZUMAB
     Indication: Migraine
     Dosage: INFUSION NOT COMPLETED.  67 ML LEFT IN THE BAG
     Route: 041
     Dates: start: 20211124, end: 20211124
  2. IBUPROFEN [Concomitant]
     Active Substance: IBUPROFEN
     Indication: Migraine
     Dosage: PRN
     Route: 048
     Dates: start: 2005
  3. SUMATRIPTAN [Concomitant]
     Active Substance: SUMATRIPTAN
     Indication: Migraine
     Dosage: PRN
     Route: 048
     Dates: start: 201911

REACTIONS (1)
  - Hypersensitivity [Recovered/Resolved]

NARRATIVE: CASE EVENT DATE: 20211124
